FAERS Safety Report 8082661-1 (Version None)
Quarter: 2012Q1

REPORT INFORMATION
  Report Type: 
  Country: None (occurrence: None)
  Receive Date: 20120127
  Receipt Date: 20110223
  Transmission Date: 20120608
  Serious: No
  Sender: FDA-Public Use
  Company Number: US-ABBOTT-11P-163-0707458-00

PATIENT
  Sex: Male
  Weight: 90.8 kg

DRUGS (7)
  1. PREDNISONE TAB [Concomitant]
     Indication: ARTHRITIS
  2. HUMIRA [Suspect]
     Indication: ARTHRITIS
     Dates: start: 20110131
  3. FLEXERIL [Concomitant]
     Indication: ARTHRITIS
     Dosage: PRN
  4. METHOTREXATE [Concomitant]
     Indication: ARTHRITIS
  5. FOLIC ACID [Concomitant]
     Indication: PRODUCT USED FOR UNKNOWN INDICATION
  6. ULTRAM [Concomitant]
     Indication: ARTHRITIS
  7. OMEPRAZOLE [Concomitant]
     Indication: PRODUCT USED FOR UNKNOWN INDICATION

REACTIONS (2)
  - NAUSEA [None]
  - INJECTION SITE PAIN [None]
